FAERS Safety Report 9397656 (Version 3)
Quarter: 2013Q3

REPORT INFORMATION
  Report Type: Spontaneous
  Country: FR (occurrence: FR)
  Receive Date: 20130712
  Receipt Date: 20130930
  Transmission Date: 20140515
  Serious: Yes (Other)
  Sender: FDA-Public Use
  Company Number: FR-JNJFOC-20130702937

PATIENT
  Age: 71 Year
  Sex: Male

DRUGS (2)
  1. XARELTO [Suspect]
     Indication: ATRIAL FIBRILLATION
     Route: 048
     Dates: start: 20130223, end: 20130529
  2. XARELTO [Suspect]
     Indication: CEREBROVASCULAR ACCIDENT PROPHYLAXIS
     Route: 048
     Dates: start: 20130223, end: 20130529

REACTIONS (5)
  - Prurigo [Recovered/Resolved]
  - Thrombocytopenia [Not Recovered/Not Resolved]
  - Transaminases increased [Unknown]
  - Cholestasis [Unknown]
  - Abdominal pain upper [Unknown]
